FAERS Safety Report 22632703 (Version 1)
Quarter: 2023Q2

REPORT INFORMATION
  Report Type: Spontaneous
  Country: US (occurrence: None)
  Receive Date: 20230623
  Receipt Date: 20230623
  Transmission Date: 20230721
  Serious: No
  Sender: FDA-Public Use
  Company Number: 2023A144419

PATIENT

DRUGS (1)
  1. PULMICORT FLEXHALER [Suspect]
     Active Substance: BUDESONIDE
     Dosage: 180 MICROGRAM
     Route: 055

REACTIONS (6)
  - Asthenia [Unknown]
  - Dyspnoea [Unknown]
  - Malaise [Unknown]
  - Fatigue [Unknown]
  - Feeling abnormal [Unknown]
  - Euphoric mood [Unknown]
